FAERS Safety Report 10358329 (Version 3)
Quarter: 2014Q3

REPORT INFORMATION
  Report Type: Spontaneous
  Country: US (occurrence: None)
  Receive Date: 20140730
  Receipt Date: 20140828
  Transmission Date: 20150326
  Serious: Yes (Hospitalization, Other)
  Sender: FDA-Public Use
  Company Number: UNT-2014-004233

PATIENT
  Age: 63 Year
  Sex: Female
  Weight: 76.6 kg

DRUGS (3)
  1. ADCIRCA [Concomitant]
     Active Substance: TADALAFIL
  2. REMODULIN [Suspect]
     Active Substance: TREPROSTINIL
     Indication: PULMONARY ARTERIAL HYPERTENSION
     Route: 041
     Dates: start: 20140526, end: 20140717
  3. COUMADIN [Concomitant]
     Active Substance: WARFARIN SODIUM

REACTIONS (6)
  - Lung transplant [None]
  - Right ventricular failure [None]
  - Condition aggravated [None]
  - Pulmonary arterial hypertension [None]
  - Syncope [None]
  - Mental status changes [None]

NARRATIVE: CASE EVENT DATE: 20140526
